FAERS Safety Report 10494567 (Version 1)
Quarter: 2014Q4

REPORT INFORMATION
  Report Type: Spontaneous
  Country: US (occurrence: US)
  Receive Date: 20141003
  Receipt Date: 20141003
  Transmission Date: 20150528
  Serious: Yes (Other)
  Sender: FDA-Public Use
  Company Number: US-BAYER-2014-146855

PATIENT
  Age: 20 Year
  Sex: Female

DRUGS (1)
  1. MIRENA [Suspect]
     Active Substance: LEVONORGESTREL
     Indication: CONTRACEPTION
     Dosage: 20 MCG/24HR, CONT
     Route: 015
     Dates: start: 20110517, end: 20120514

REACTIONS (7)
  - Anxiety [None]
  - Injury [Not Recovered/Not Resolved]
  - Vaginal haemorrhage [None]
  - Pelvic pain [Not Recovered/Not Resolved]
  - Device dislocation [Not Recovered/Not Resolved]
  - Device dislocation [Not Recovered/Not Resolved]
  - Emotional distress [None]

NARRATIVE: CASE EVENT DATE: 201202
